FAERS Safety Report 21693423 (Version 2)
Quarter: 2022Q4

REPORT INFORMATION
  Report Type: Report from Study
  Country: BR (occurrence: BR)
  Receive Date: 20221207
  Receipt Date: 20221219
  Transmission Date: 20230112
  Serious: Yes (Hospitalization, Other)
  Sender: FDA-Public Use
  Company Number: BR-002147023-NVSC2022BR237821

PATIENT
  Age: 73 Year
  Sex: Female
  Weight: 58 kg

DRUGS (5)
  1. KISQALI [Suspect]
     Active Substance: RIBOCICLIB
     Indication: Product used for unknown indication
     Dosage: 3 DOSAGE FORM, Q3W
     Route: 065
  2. KISQALI [Suspect]
     Active Substance: RIBOCICLIB
     Dosage: 3 DOSAGE FORM (21 AND PAUSE OF 7)
     Route: 065
  3. KISQALI [Suspect]
     Active Substance: RIBOCICLIB
     Dosage: 3 DOSAGE FORM,  (MANUFA: JUL 2021) , (AFTER LUNCH)
     Route: 065
     Dates: start: 20221003
  4. ESCITALOPRAM [Suspect]
     Active Substance: ESCITALOPRAM OXALATE
     Indication: Product used for unknown indication
     Dosage: UNK
     Route: 065
  5. ANASTROZOLE [Concomitant]
     Active Substance: ANASTROZOLE
     Indication: Product used for unknown indication
     Dosage: UNK (ANYA)
     Route: 065

REACTIONS (46)
  - Thyroid cancer [Unknown]
  - Haemorrhage [Unknown]
  - Heart rate increased [Recovered/Resolved]
  - Nervousness [Unknown]
  - Dermatitis allergic [Not Recovered/Not Resolved]
  - Tumour pain [Unknown]
  - Lip dry [Unknown]
  - Gastrointestinal disorder [Recovered/Resolved]
  - Skin exfoliation [Unknown]
  - Feeling abnormal [Recovered/Resolved]
  - Ageusia [Unknown]
  - Body temperature increased [Unknown]
  - Tremor [Recovered/Resolved]
  - Heart rate increased [Recovered/Resolved]
  - Weight abnormal [Unknown]
  - Breast enlargement [Unknown]
  - Discharge [Unknown]
  - Nodule [Recovering/Resolving]
  - Pain in extremity [Recovering/Resolving]
  - Fear [Unknown]
  - Breast pain [Unknown]
  - Heart rate irregular [Recovered/Resolved]
  - Chills [Recovered/Resolved]
  - Gastrointestinal sounds abnormal [Recovered/Resolved]
  - Blood pressure increased [Unknown]
  - Anxiety [Unknown]
  - Skin irritation [Unknown]
  - Abdominal discomfort [Unknown]
  - Gastrointestinal sounds abnormal [Recovering/Resolving]
  - Malaise [Recovering/Resolving]
  - Ill-defined disorder [Unknown]
  - Feeling cold [Recovering/Resolving]
  - Neck mass [Unknown]
  - Breast mass [Unknown]
  - Gait disturbance [Recovering/Resolving]
  - Visual impairment [Unknown]
  - Burning sensation [Unknown]
  - Snoring [Unknown]
  - Dizziness [Unknown]
  - Decreased appetite [Unknown]
  - Alopecia [Unknown]
  - Pruritus [Recovering/Resolving]
  - Nausea [Unknown]
  - Abdominal pain [Recovering/Resolving]
  - Diarrhoea [Recovering/Resolving]
  - Pruritus [Not Recovered/Not Resolved]

NARRATIVE: CASE EVENT DATE: 20221017
